FAERS Safety Report 24593787 (Version 1)
Quarter: 2024Q4

REPORT INFORMATION
  Report Type: Report from Study
  Country: BE (occurrence: BE)
  Receive Date: 20241108
  Receipt Date: 20241108
  Transmission Date: 20250115
  Serious: Yes (Hospitalization)
  Sender: PFIZER
  Company Number: GB-UNIOBIRM-SA3009-0654-01

PATIENT
  Age: 11 Year
  Sex: Female
  Weight: 40 kg

DRUGS (9)
  1. IRINOTECAN HYDROCHLORIDE [Suspect]
     Active Substance: IRINOTECAN HYDROCHLORIDE
     Indication: Rhabdomyosarcoma
     Dosage: 50MG/M2 DAYS 8,9,10,11+12 ON CYCLE 5, TIMING AS PER LOCAL PRACTICE: RECOMMENDED OVER 1 HOUR
     Route: 042
     Dates: start: 20240713, end: 20241010
  2. DACTINOMYCIN [Suspect]
     Active Substance: DACTINOMYCIN
     Indication: Rhabdomyosarcoma
     Dosage: 1.5MG/M2 (2MG/DAY) DAY 1, ON CYCLE 5/OMITTED DURING AND FOR 2 WEEKS AFTER RADIOTHERAPY, MAX DOSE 2MG
     Route: 042
     Dates: start: 20240706, end: 20241001
  3. IFOSFAMIDE [Concomitant]
     Active Substance: IFOSFAMIDE
     Indication: Rhabdomyosarcoma
     Dosage: 3G/M2 (4.1 G/DAY DAYS 1 AND 2, ON CYCLE 5), RECOMMENDED TIME OVER 3 HOURS, WITH MESNA + HYDRATION
     Route: 042
     Dates: start: 20240706, end: 20241002
  4. VINCRISTINE [Concomitant]
     Active Substance: VINCRISTINE
     Indication: Rhabdomyosarcoma
     Dosage: 1.5MG/M2, DAYS 1,8+15 (CYCLES 1+2), DAYS 1+8 (CYCLE 3,4,5,6,7,8,9) ON CYCLE 5, MAX. DOSE 2 MG
     Route: 042
     Dates: start: 20240706, end: 20241007
  5. METRONIDAZOLE [Concomitant]
     Active Substance: METRONIDAZOLE
     Indication: Clostridium difficile infection
     Dosage: UNK
  6. CIPROFLOXACIN [Concomitant]
     Active Substance: CIPROFLOXACIN
     Indication: Antibiotic prophylaxis
     Dosage: UNK
  7. VANCOMYCIN [Concomitant]
     Active Substance: VANCOMYCIN
     Indication: Clostridium difficile infection
     Dosage: UNK
  8. AMINO ACIDS\DEXTROSE\ELECTROLYTES NOS\SOYBEAN OIL [Concomitant]
     Active Substance: AMINO ACIDS\DEXTROSE\ELECTROLYTES NOS\SOYBEAN OIL
     Indication: Parenteral nutrition
     Dosage: UNK
  9. TRAMADOL HYDROCHLORIDE [Concomitant]
     Active Substance: TRAMADOL HYDROCHLORIDE
     Indication: Pain
     Dosage: UNK

REACTIONS (1)
  - Venoocclusive liver disease [Not Recovered/Not Resolved]

NARRATIVE: CASE EVENT DATE: 20241011
